FAERS Safety Report 23404847 (Version 1)
Quarter: 2024Q1

REPORT INFORMATION
  Report Type: Spontaneous
  Country: CL (occurrence: CL)
  Receive Date: 20240116
  Receipt Date: 20240116
  Transmission Date: 20240409
  Serious: Yes (Death, Other)
  Sender: FDA-Public Use
  Company Number: CL-UNITED THERAPEUTICS-UNT-2024-001276

PATIENT
  Age: 64 Year
  Sex: Female

DRUGS (1)
  1. REMODULIN [Suspect]
     Active Substance: TREPROSTINIL
     Indication: Product used for unknown indication
     Dosage: 0.020 ?G/KG, CONTINUING
     Route: 058

REACTIONS (2)
  - Cardiac failure [Fatal]
  - Respiratory failure [Fatal]
